FAERS Safety Report 16738413 (Version 3)
Quarter: 2020Q2

REPORT INFORMATION
  Report Type: Report from Study
  Country: None (occurrence: JP)
  Receive Date: 20190825
  Receipt Date: 20200418
  Transmission Date: 20200713
  Serious: Yes (Hospitalization)
  Sender: FDA-Public Use
  Company Number: JP-ABBVIE-17P-087-2058751-00

PATIENT
  Age: 47 Year
  Sex: Male
  Weight: 60 kg

DRUGS (13)
  1. MANIDIPINE HYDROCHLORIDE [Concomitant]
     Active Substance: MANIDIPINE HYDROCHLORIDE
     Route: 048
     Dates: start: 20180123, end: 20180402
  2. DUODOPA [Suspect]
     Active Substance: CARBIDOPA\LEVODOPA
     Dosage: MD: 9.3 ML?CD: 2.2 ML/HR *16HR?ED: 2.5 ML/UNIT *1 TIME
     Route: 050
     Dates: start: 20190104
  3. DUODOPA [Suspect]
     Active Substance: CARBIDOPA\LEVODOPA
     Dosage: MD: 8.3 ML, CD: 1.9 ML/HR X 16 HR, ED: 1.2 ML/UNIT X2
     Route: 050
     Dates: start: 20170721, end: 20180115
  4. DUODOPA [Suspect]
     Active Substance: CARBIDOPA\LEVODOPA
     Dosage: MD: 9.3 ML?CD: 2.2 ML/HR ? 16 HRS?ED: 2.0 ML/UNIT ? 1 TIME
     Route: 050
     Dates: start: 20180116, end: 20190104
  5. ROTIGOTINE [Concomitant]
     Active Substance: ROTIGOTINE
     Route: 062
     Dates: start: 20170725
  6. AMANTADINE HYDROCHLORIDE. [Concomitant]
     Active Substance: AMANTADINE HYDROCHLORIDE
     Indication: PARKINSON^S DISEASE
     Route: 048
     Dates: end: 20180121
  7. MANIDIPINE HYDROCHLORIDE [Concomitant]
     Active Substance: MANIDIPINE HYDROCHLORIDE
     Indication: PROPHYLAXIS
     Route: 048
     Dates: start: 20180122
  8. MAGNESIUM OXIDE. [Concomitant]
     Active Substance: MAGNESIUM OXIDE
     Indication: PROPHYLAXIS
     Route: 048
  9. DUODOPA [Suspect]
     Active Substance: CARBIDOPA\LEVODOPA
     Indication: PRODUCT USED FOR UNKNOWN INDICATION
     Dosage: CD: 1.2 ML/HR X 16 HR MD 5.3 ML
     Route: 050
     Dates: start: 20170713, end: 20170714
  10. ROTIGOTINE [Concomitant]
     Active Substance: ROTIGOTINE
     Indication: PARKINSON^S DISEASE
     Route: 062
     Dates: end: 20170724
  11. AMANTADINE HYDROCHLORIDE. [Concomitant]
     Active Substance: AMANTADINE HYDROCHLORIDE
     Dates: start: 20190103, end: 20190123
  12. AMANTADINE HYDROCHLORIDE. [Concomitant]
     Active Substance: AMANTADINE HYDROCHLORIDE
     Route: 048
     Dates: start: 20190124
  13. ROPINIROLE HYDROCHLORIDE. [Concomitant]
     Active Substance: ROPINIROLE HYDROCHLORIDE
     Indication: PARKINSON^S DISEASE
     Route: 048
     Dates: start: 20190626

REACTIONS (11)
  - Gastric ulcer [Recovering/Resolving]
  - Constipation [Not Recovered/Not Resolved]
  - Device kink [Recovered/Resolved]
  - Device dislocation [Recovered/Resolved]
  - Pneumonia aspiration [Recovered/Resolved]
  - Incorrect route of product administration [Unknown]
  - Insomnia [Not Recovered/Not Resolved]
  - Malaise [Unknown]
  - Bezoar [Recovered/Resolved]
  - Device delivery system issue [Unknown]
  - Therapeutic product effect incomplete [Unknown]

NARRATIVE: CASE EVENT DATE: 2017
